FAERS Safety Report 8513740 (Version 4)
Quarter: 2013Q2

REPORT INFORMATION
  Report Type: Spontaneous
  Country: JP (occurrence: JP)
  Receive Date: 20120416
  Receipt Date: 20130502
  Transmission Date: 20140414
  Serious: Yes (Life-Threatening, Hospitalization, Disabling)
  Sender: FDA-Public Use
  Company Number: JP-BRISTOL-MYERS SQUIBB COMPANY-16513145

PATIENT
  Age: 83 Year
  Sex: Female
  Weight: 44 kg

DRUGS (13)
  1. MAXIPIME FOR INJ 1 G [Suspect]
     Indication: CHOLANGITIS
     Route: 042
     Dates: start: 20120403, end: 20120410
  2. MAXIPIME FOR INJ 1 G [Suspect]
     Indication: PSEUDOMONAL BACTERAEMIA
     Route: 042
     Dates: start: 20120403, end: 20120410
  3. CALCIUM CARBONATE [Concomitant]
     Dosage: TABS
  4. NORVASC [Concomitant]
     Dosage: TABS
  5. LAC-B [Concomitant]
     Dosage: POWDER
  6. GASTER D [Concomitant]
     Dosage: TABS
  7. CARVEDILOL [Concomitant]
     Dosage: TABS
  8. ONEALFA [Concomitant]
     Dosage: TABS
  9. MYSLEE [Concomitant]
     Dosage: TABS
  10. RISUMIC [Concomitant]
     Dosage: TABS
  11. SENNOSIDE [Concomitant]
  12. DEPAS [Concomitant]
     Dosage: TABS
  13. PREDNISOLONE [Concomitant]
     Dosage: TABS

REACTIONS (1)
  - Altered state of consciousness [Recovered/Resolved]
